FAERS Safety Report 25756305 (Version 2)
Quarter: 2025Q3

REPORT INFORMATION
  Report Type: Spontaneous
  Country: EU (occurrence: EU)
  Receive Date: 20250903
  Receipt Date: 20250915
  Transmission Date: 20251021
  Serious: No
  Sender: PFIZER
  Company Number: EU-TOWA-202503796

PATIENT
  Age: 80 Year
  Sex: Female

DRUGS (8)
  1. PANTOPRAZOLE [Suspect]
     Active Substance: PANTOPRAZOLE
     Indication: Dyspepsia
     Dosage: 20 MG, 1X/DAY
     Route: 065
     Dates: start: 2018
  2. SIMVASTATIN [Concomitant]
     Active Substance: SIMVASTATIN
     Indication: Cardiovascular event prophylaxis
     Dosage: 20 MG, 1X/DAY
     Route: 065
     Dates: start: 2021
  3. LOSARTAN [Concomitant]
     Active Substance: LOSARTAN
     Indication: Hypertension
     Dosage: 50 MG, 1X/DAY
     Dates: start: 2015
  4. BISOPROLOL [Concomitant]
     Active Substance: BISOPROLOL
     Indication: Cardiac failure
     Dosage: 2.5 MG, 1X/DAY
     Dates: start: 2021
  5. AMLODIPINE [Concomitant]
     Active Substance: AMLODIPINE BESYLATE
     Indication: Angina pectoris
     Dosage: 5 MG, 1X/DAY
     Dates: start: 2021
  6. CLOPIDOGREL [Concomitant]
     Active Substance: CLOPIDOGREL BISULFATE
     Indication: Angina pectoris
     Dosage: 75 MG, 1X/DAY
     Dates: start: 2021
  7. EZETIMIBE [Concomitant]
     Active Substance: EZETIMIBE
     Indication: Cardiovascular event prophylaxis
     Dosage: 10 MG, 1X/DAY
     Dates: start: 2021
  8. CHOLECALCIFEROL [Concomitant]
     Active Substance: CHOLECALCIFEROL
     Indication: Vitamin D deficiency
     Dates: start: 2021

REACTIONS (1)
  - Off label use [Unknown]

NARRATIVE: CASE EVENT DATE: 20180101
